FAERS Safety Report 7455823-1 (Version None)
Quarter: 2011Q2

REPORT INFORMATION
  Report Type: 
  Country: None (occurrence: None)
  Receive Date: 20110503
  Receipt Date: 20110407
  Transmission Date: 20111010
  Serious: Yes (Other)
  Sender: FDA-Public Use
  Company Number: US-JNJFOC-20110207818

PATIENT
  Sex: Female
  Weight: 120.34 kg

DRUGS (8)
  1. INVEGA SUSTENNA [Suspect]
     Route: 030
  2. RISPERDAL [Concomitant]
     Route: 048
  3. ABILIFY [Concomitant]
     Route: 048
  4. COGENTIN [Concomitant]
     Dosage: THREE DAILY FOR MOVEMENT PROBLEMS
     Route: 048
  5. INVEGA SUSTENNA [Suspect]
     Indication: SCHIZOPHRENIA
     Route: 030
  6. INVEGA SUSTENNA [Suspect]
     Route: 030
  7. INVEGA SUSTENNA [Suspect]
     Route: 030
  8. INVEGA SUSTENNA [Suspect]
     Route: 030

REACTIONS (2)
  - INJECTION SITE ABSCESS [None]
  - SKIN IRRITATION [None]
